FAERS Safety Report 16692323 (Version 1)
Quarter: 2019Q3

REPORT INFORMATION
  Report Type: Spontaneous
  Country: IT (occurrence: IT)
  Receive Date: 20190812
  Receipt Date: 20190812
  Transmission Date: 20191004
  Serious: Yes (Hospitalization, Other)
  Sender: FDA-Public Use
  Company Number: IT-AVION PHARMACEUTICALS, LLC-2073031

PATIENT
  Age: 1 Month
  Sex: Female

DRUGS (1)
  1. GLOPERBA [Suspect]
     Active Substance: COLCHICINE
     Indication: ACCIDENTAL EXPOSURE TO PRODUCT
     Route: 065

REACTIONS (5)
  - Hypotension [Unknown]
  - Vomiting [Unknown]
  - Diarrhoea [Unknown]
  - Cardiac failure [Unknown]
  - Cerebral disorder [Unknown]
